FAERS Safety Report 23521870 (Version 1)
Quarter: 2024Q1

REPORT INFORMATION
  Report Type: Spontaneous
  Country: US (occurrence: US)
  Receive Date: 20240214
  Receipt Date: 20240214
  Transmission Date: 20240410
  Serious: No
  Sender: FDA-Public Use
  Company Number: US-P+L Developments of Newyork Corporation-2153166

PATIENT
  Age: 82 Year
  Sex: Male

DRUGS (2)
  1. DOCOSANOL [Suspect]
     Active Substance: DOCOSANOL
     Route: 065
     Dates: start: 20240106, end: 20240119
  2. DOCOSANOL [Suspect]
     Active Substance: DOCOSANOL
     Route: 065
     Dates: start: 20240106, end: 20240119

REACTIONS (2)
  - Swelling [Not Recovered/Not Resolved]
  - Product use issue [Unknown]

NARRATIVE: CASE EVENT DATE: 20240113
